FAERS Safety Report 4481953-2 (Version None)
Quarter: 2004Q4

REPORT INFORMATION
  Report Type: 
  Country: None (occurrence: None)
  Receive Date: 20041020
  Receipt Date: 20040930
  Transmission Date: 20050328
  Serious: Yes (Hospitalization)
  Sender: FDA-Public Use
  Company Number: FR_040604289

PATIENT
  Age: 81 Year
  Sex: Male

DRUGS (3)
  1. CELANCE (PERGOLIDE MESYLATE) [Suspect]
     Indication: PARKINSON'S DISEASE
     Dosage: 3.75 MG/1 DAY
     Dates: start: 20010401, end: 20040601
  2. SINEMET [Concomitant]
  3. MOTILIUM (DOMPERIDONE MALEATE) [Concomitant]

REACTIONS (6)
  - GENERAL PHYSICAL HEALTH DETERIORATION [None]
  - HYDRONEPHROSIS [None]
  - RENAL FAILURE [None]
  - RETROPERITONEAL FIBROSIS [None]
  - URETERIC DILATATION [None]
  - WEIGHT DECREASED [None]
